FAERS Safety Report 4835550-7 (Version None)
Quarter: 2005Q4

REPORT INFORMATION
  Report Type: 
  Country: None (occurrence: None)
  Receive Date: 20051121
  Receipt Date: 20051115
  Transmission Date: 20060501
  Serious: Yes (Other)
  Sender: FDA-Public Use
  Company Number: 200511129BWH

PATIENT
  Age: 69 Year
  Sex: Female
  Weight: 53.978 kg

DRUGS (1)
  1. AVELOX [Suspect]
     Indication: PNEUMONIA
     Dosage: 400 MG QD ORAL
     Route: 048
     Dates: start: 20050601, end: 20050603

REACTIONS (5)
  - INTESTINAL FUNCTIONAL DISORDER [None]
  - OVERDOSE [None]
  - PAIN [None]
  - RECTAL DISCHARGE [None]
  - RECTAL HAEMORRHAGE [None]
